FAERS Safety Report 5893039-0 (Version None)
Quarter: 2008Q3

REPORT INFORMATION
  Report Type: 
  Country: None (occurrence: None)
  Receive Date: 20080923
  Receipt Date: 20080211
  Transmission Date: 20090109
  Serious: No
  Sender: FDA-Public Use
  Company Number: US-ASTRAZENECA-2006UW27781

PATIENT
  Age: 344 Month
  Sex: Female
  Weight: 119.5 kg

DRUGS (3)
  1. SEROQUEL [Suspect]
     Indication: DEPRESSION
     Route: 048
     Dates: start: 20030101, end: 20050801
  2. RISPERDAL [Concomitant]
     Dates: start: 20040801
  3. DEXATRIM [Concomitant]
     Dates: start: 20061101, end: 20061201

REACTIONS (7)
  - BACK PAIN [None]
  - BLOOD CHOLESTEROL INCREASED [None]
  - BLOOD TRIGLYCERIDES INCREASED [None]
  - CARDIAC DISORDER [None]
  - DIABETES MELLITUS [None]
  - HYPERLIPIDAEMIA [None]
  - OBESITY [None]
